FAERS Safety Report 4283266-0 (Version None)
Quarter: 2004Q1

REPORT INFORMATION
  Report Type: 
  Country: None (occurrence: None)
  Receive Date: 20040129
  Receipt Date: 20040116
  Transmission Date: 20041129
  Serious: Yes (Hospitalization)
  Sender: FDA-Public Use
  Company Number: BE-JNJFOC-20040103134

PATIENT
  Age: 66 Year
  Sex: Female

DRUGS (7)
  1. SPORANOX [Suspect]
     Indication: PNEUMONIA ASPERGILLUS
     Dosage: SEE IMAGE
     Route: 048
     Dates: start: 20031001
  2. MEDROL [Concomitant]
  3. FOSAMAX [Concomitant]
  4. ACCOLATE [Concomitant]
  5. SERETIDE (SERETIDE) [Concomitant]
  6. LODIXAL (VERAPAMIL HYDROCHLORIDE) [Concomitant]
  7. PERICAL (FLAVODATE DISODIUM) [Concomitant]

REACTIONS (7)
  - ASTHENIA [None]
  - DIFFICULTY IN WALKING [None]
  - EXTRAOCULAR MUSCLE PARESIS [None]
  - MUSCULAR WEAKNESS [None]
  - PLATELET COUNT INCREASED [None]
  - SCLERAL HAEMORRHAGE [None]
  - SWELLING FACE [None]
